FAERS Safety Report 7415851-9 (Version None)
Quarter: 2011Q2

REPORT INFORMATION
  Report Type: 
  Country: None (occurrence: None)
  Receive Date: 20110414
  Receipt Date: 20110317
  Transmission Date: 20111010
  Serious: No
  Sender: FDA-Public Use
  Company Number: US-B.I. PHARMACEUTICALS,INC./RIDGEFIELD-2011-BP-08546BP

PATIENT
  Sex: Male

DRUGS (6)
  1. METOPROLOL TARTRATE [Concomitant]
     Indication: ATRIAL FIBRILLATION
  2. MULTIVITAMIN [Concomitant]
     Indication: MACULAR DEGENERATION
  3. PRADAXA [Suspect]
     Indication: ATRIAL FIBRILLATION
     Dosage: 300 MG
     Route: 048
     Dates: start: 20101201
  4. VITAMINS [Concomitant]
     Indication: PROPHYLAXIS
  5. ACETAMINOPHEN [Concomitant]
     Indication: PAIN
  6. OXYCODONE [Concomitant]
     Indication: PAIN

REACTIONS (3)
  - LIMB INJURY [None]
  - CONTUSION [None]
  - OEDEMA PERIPHERAL [None]
